FAERS Safety Report 10493862 (Version 4)
Quarter: 2016Q3

REPORT INFORMATION
  Report Type: Spontaneous
  Country: CA (occurrence: CA)
  Receive Date: 20141003
  Receipt Date: 20160712
  Transmission Date: 20161109
  Serious: Yes (Death, Hospitalization)
  Sender: FDA-Public Use
  Company Number: CA-MERCK-1409CAN014142

PATIENT
  Sex: Female

DRUGS (2)
  1. POSANOL [Interacting]
     Active Substance: POSACONAZOLE
     Dosage: 300 MG, TID
     Route: 048
     Dates: start: 20151006
  2. POSANOL [Suspect]
     Active Substance: POSACONAZOLE
     Indication: ASPERGILLUS INFECTION
     Dosage: 400 MG, BID (STRENGTH 40 MG/ML)
     Route: 048
     Dates: start: 20140912, end: 2014

REACTIONS (3)
  - Drug interaction [Unknown]
  - Gastroenteritis viral [Fatal]
  - Adverse event [Unknown]

NARRATIVE: CASE EVENT DATE: 2014
